FAERS Safety Report 22065997 (Version 1)
Quarter: 2023Q1

REPORT INFORMATION
  Report Type: Spontaneous
  Country: BE (occurrence: BE)
  Receive Date: 20230306
  Receipt Date: 20230306
  Transmission Date: 20230418
  Serious: Yes (Hospitalization, Other)
  Sender: FDA-Public Use
  Company Number: BE-EMA-DD-20230223-225467-110159

PATIENT
  Age: 76 Year
  Sex: Male

DRUGS (4)
  1. GEMCITABINE HYDROCHLORIDE [Suspect]
     Active Substance: GEMCITABINE HYDROCHLORIDE
     Indication: Chemotherapy
     Dosage: 1830 MG, UNKNOWN
     Route: 065
     Dates: end: 20210811
  2. APIXABAN [Concomitant]
     Active Substance: APIXABAN
     Indication: Atrial fibrillation
     Dosage: 1 TAB 2X/DAY
     Route: 065
  3. TAMSULOSIN [Concomitant]
     Active Substance: TAMSULOSIN
     Indication: Benign prostatic hyperplasia
     Dosage: 1 TAB /EVENING
  4. PERINDOPRIL ARGININE [Concomitant]
     Active Substance: PERINDOPRIL ARGININE
     Indication: Hypertension
     Dosage: 10 MG, DAILY

REACTIONS (2)
  - C-reactive protein increased [Recovering/Resolving]
  - Pancreatitis acute [Recovering/Resolving]

NARRATIVE: CASE EVENT DATE: 20210814
